FAERS Safety Report 5894714-4 (Version None)
Quarter: 2008Q3

REPORT INFORMATION
  Report Type: 
  Country: None (occurrence: None)
  Receive Date: 20080924
  Receipt Date: 20080520
  Transmission Date: 20090109
  Serious: No
  Sender: FDA-Public Use
  Company Number: US-ASTRAZENECA-2008UW10368

PATIENT
  Age: 17 Year
  Sex: Male

DRUGS (1)
  1. SEROQUEL [Suspect]
     Dosage: 300 MG AT NIGHT AND 50 MG IN MORNING
     Route: 048

REACTIONS (1)
  - BLOOD PROLACTIN INCREASED [None]
